FAERS Safety Report 5632985-X (Version None)
Quarter: 2008Q1

REPORT INFORMATION
  Report Type: 
  Country: None (occurrence: None)
  Receive Date: 20080221
  Receipt Date: 20080215
  Transmission Date: 20080703
  Serious: Yes (Death, Hospitalization)
  Sender: FDA-Public Use
  Company Number: US-JNJFOC-20080203707

PATIENT
  Sex: Male
  Weight: 63.5 kg

DRUGS (9)
  1. FENTANYL TRANSDERMAL SYSTEM [Suspect]
     Indication: PAIN
     Route: 062
  2. UNSPECIFIED PAIN PATCH [Suspect]
     Indication: PAIN
     Route: 062
  3. OXYBUTININ [Concomitant]
     Route: 048
  4. TEMAZEPAM [Concomitant]
     Dosage: AS NEEDED
     Route: 048
  5. TOPROL [Concomitant]
     Dosage: 1/2 TABLET DAILY
     Route: 048
  6. PROMETHAZINE [Concomitant]
     Indication: NAUSEA
     Route: 048
  7. AMITRIPTYLINE HCL [Concomitant]
     Route: 048
  8. MORPHINE [Concomitant]
     Route: 048
  9. MORPHINE [Concomitant]
     Indication: PAIN
     Route: 048

REACTIONS (5)
  - BALANCE DISORDER [None]
  - DISTURBANCE IN ATTENTION [None]
  - HALLUCINATION, VISUAL [None]
  - LUNG NEOPLASM MALIGNANT [None]
  - PAIN [None]
